FAERS Safety Report 9699042 (Version 4)
Quarter: 2014Q1

REPORT INFORMATION
  Report Type: Report from Study
  Country: US (occurrence: US)
  Receive Date: 20131120
  Receipt Date: 20140326
  Transmission Date: 20141002
  Serious: Yes (Death, Hospitalization)
  Sender: FDA-Public Use
  Company Number: US-ACTELION-A-NJ2013-91454

PATIENT
  Age: 76 Year
  Sex: Female

DRUGS (4)
  1. VENTAVIS [Suspect]
     Indication: PULMONARY ARTERIAL HYPERTENSION
     Dosage: 6 TIMES A DAY
     Route: 055
     Dates: start: 201207, end: 20131112
  2. DURAGESIC [Suspect]
  3. LETAIRIS [Concomitant]
  4. COUMADIN [Concomitant]

REACTIONS (6)
  - Renal failure acute [Fatal]
  - Septic shock [Fatal]
  - Respiratory failure [Fatal]
  - Pneumonia [Fatal]
  - Infection [Recovering/Resolving]
  - Altered state of consciousness [Recovering/Resolving]
